FAERS Safety Report 5300533-X (Version None)
Quarter: 2007Q2

REPORT INFORMATION
  Report Type: 
  Country: None (occurrence: None)
  Receive Date: 20070418
  Receipt Date: 20070406
  Transmission Date: 20071010
  Serious: Yes (Other)
  Sender: FDA-Public Use
  Company Number: PHEH2007US04757

PATIENT
  Age: 70 Year
  Sex: Male

DRUGS (1)
  1. ZELNORM [Suspect]
     Indication: IRRITABLE BOWEL SYNDROME
     Dosage: 6 MG, BID
     Route: 048
     Dates: start: 20060601, end: 20060901

REACTIONS (3)
  - DRUG INEFFECTIVE [None]
  - NAUSEA [None]
  - OESOPHAGEAL ULCER [None]
